FAERS Safety Report 4923203-6 (Version None)
Quarter: 2006Q1

REPORT INFORMATION
  Report Type: 
  Country: None (occurrence: None)
  Receive Date: 20060127
  Receipt Date: 20051229
  Transmission Date: 20060701
  Serious: Yes (Other)
  Sender: FDA-Public Use
  Company Number: 2006001418

PATIENT
  Sex: Female
  Weight: 56.246 kg

DRUGS (5)
  1. LYRICA [Suspect]
     Indication: FIBROMYALGIA
     Dosage: 75 MG (75 MG, 1 IN 1 D)
     Dates: start: 20051201
  2. CYMBALTA [Suspect]
     Indication: FIBROMYALGIA
     Dosage: 30 MG
     Dates: start: 20051201
  3. TOPAMAX [Concomitant]
  4. TOPROL-XL [Concomitant]
  5. ZETIA [Concomitant]

REACTIONS (1)
  - SOMNOLENCE [None]
